FAERS Safety Report 9302622 (Version 3)
Quarter: 2013Q2

REPORT INFORMATION
  Report Type: Spontaneous
  Country: PH (occurrence: PH)
  Receive Date: 20130522
  Receipt Date: 20130624
  Transmission Date: 20140414
  Serious: Yes (Death, Other)
  Sender: FDA-Public Use
  Company Number: PH-009507513-1305PHL008302

PATIENT
  Age: 81 Year
  Sex: Male

DRUGS (1)
  1. JANUVIA [Suspect]
     Dosage: 1 DF, QD
     Route: 048

REACTIONS (4)
  - Squamous cell carcinoma [Fatal]
  - Cardiac disorder [Fatal]
  - Lung lobectomy [Unknown]
  - Pulmonary mass [Unknown]
